FAERS Safety Report 21462512 (Version 3)
Quarter: 2022Q4

REPORT INFORMATION
  Report Type: Report from Study
  Country: IE (occurrence: IE)
  Receive Date: 20221016
  Receipt Date: 20221028
  Transmission Date: 20230112
  Serious: No
  Sender: FDA-Public Use
  Company Number: IE-JNJFOC-20220962617

PATIENT
  Age: 50 Year
  Sex: Female

DRUGS (4)
  1. STELARA [Suspect]
     Active Substance: USTEKINUMAB
     Indication: Psoriasis
     Dosage: STRENGTH: 90.00 MG/ML
     Route: 058
     Dates: start: 20220930
  2. STELARA [Suspect]
     Active Substance: USTEKINUMAB
  3. FOLIC ACID [Concomitant]
     Active Substance: FOLIC ACID
     Route: 050
  4. PERINDOPRIL ARGININE [Concomitant]
     Active Substance: PERINDOPRIL ARGININE
     Route: 050

REACTIONS (2)
  - Device deployment issue [Unknown]
  - Product administration error [Unknown]

NARRATIVE: CASE EVENT DATE: 20220930
